FAERS Safety Report 8804754 (Version 2)
Quarter: 2012Q4

REPORT INFORMATION
  Report Type: 
  Country: JP (occurrence: JP)
  Receive Date: 20120924
  Receipt Date: 20121001
  Transmission Date: 20130627
  Serious: Yes (Other)
  Sender: FDA-Public Use
  Company Number: JP-RANBAXY-2012RR-60378

PATIENT
  Age: 25 Year
  Sex: Female

DRUGS (4)
  1. PREDNISOLONE [Suspect]
     Indication: SYSTEMIC LUPUS ERYTHEMATOSUS
     Dosage: 40 mg/day
     Route: 065
  2. RISPERIDONE [Suspect]
     Indication: SUBSTANCE-INDUCED MOOD DISORDER
     Dosage: 4 mg/day
     Route: 065
  3. RISPERIDONE [Suspect]
     Dosage: 9 mg/day, maximum
     Route: 065
  4. PREDNISOLONE [Concomitant]
     Indication: SYSTEMIC LUPUS ERYTHEMATOSUS
     Dosage: 32.5 mg/day
     Route: 065

REACTIONS (4)
  - Substance-induced mood disorder [Recovered/Resolved]
  - Dyslipidaemia [Unknown]
  - Parkinsonism [Unknown]
  - Depression [Recovered/Resolved]
